FAERS Safety Report 7769109-9 (Version None)
Quarter: 2011Q3

REPORT INFORMATION
  Report Type: 
  Country: None (occurrence: None)
  Receive Date: 20110922
  Receipt Date: 20101229
  Transmission Date: 20111222
  Serious: No
  Sender: FDA-Public Use
  Company Number: US-ASTRAZENECA-2010SE61205

PATIENT
  Age: 32 Year
  Sex: Female
  Weight: 88.5 kg

DRUGS (3)
  1. SEROQUEL [Suspect]
     Indication: OBSESSIVE-COMPULSIVE DISORDER
     Route: 048
     Dates: start: 20100401
  2. SEROQUEL [Suspect]
     Indication: POST-TRAUMATIC STRESS DISORDER
     Route: 048
     Dates: start: 20100401
  3. SEROQUEL [Suspect]
     Indication: ANXIETY
     Route: 048
     Dates: start: 20100401

REACTIONS (6)
  - SOCIAL FEAR [None]
  - DEPRESSION [None]
  - DRUG DOSE OMISSION [None]
  - OBSESSIVE THOUGHTS [None]
  - IMPAIRED WORK ABILITY [None]
  - ANXIETY [None]
